FAERS Safety Report 10334378 (Version 3)
Quarter: 2014Q4

REPORT INFORMATION
  Report Type: Report from Study
  Country: CA (occurrence: CA)
  Receive Date: 20140723
  Receipt Date: 20141030
  Transmission Date: 20150528
  Serious: Yes (Death, Hospitalization)
  Sender: FDA-Public Use
  Company Number: CA-JNJFOC-20140713435

PATIENT
  Age: 75 Year
  Sex: Female

DRUGS (1)
  1. SIMPONI [Suspect]
     Active Substance: GOLIMUMAB
     Indication: RHEUMATOID ARTHRITIS
     Route: 058
     Dates: start: 20131106, end: 20140603

REACTIONS (4)
  - Herpes zoster [Recovering/Resolving]
  - Paralysis [Not Recovered/Not Resolved]
  - Meningitis viral [Recovering/Resolving]
  - Death [Fatal]

NARRATIVE: CASE EVENT DATE: 2014
